FAERS Safety Report 23396288 (Version 1)
Quarter: 2024Q1

REPORT INFORMATION
  Report Type: Spontaneous
  Country: JP (occurrence: JP)
  Receive Date: 20240112
  Receipt Date: 20240112
  Transmission Date: 20240409
  Serious: Yes (Hospitalization)
  Sender: FDA-Public Use
  Company Number: JP-GILEAD-2023-0650051

PATIENT
  Age: 85 Year
  Sex: Male

DRUGS (3)
  1. VEKLURY [Suspect]
     Active Substance: REMDESIVIR
     Indication: COVID-19
     Dosage: UNK
     Route: 065
     Dates: start: 2023, end: 2023
  2. VEKLURY [Suspect]
     Active Substance: REMDESIVIR
     Dosage: UNK
     Route: 065
     Dates: start: 2023, end: 2023
  3. VEKLURY [Suspect]
     Active Substance: REMDESIVIR
     Dosage: UNK
     Route: 065
     Dates: start: 2023, end: 2023

REACTIONS (1)
  - COVID-19 [Recovered/Resolved]

NARRATIVE: CASE EVENT DATE: 20230101
